FAERS Safety Report 6384320-X (Version None)
Quarter: 2009Q4

REPORT INFORMATION
  Report Type: 
  Country: None (occurrence: None)
  Receive Date: 20091001
  Receipt Date: 20090924
  Transmission Date: 20100525
  Serious: Yes (Hospitalization)
  Sender: FDA-Public Use
  Company Number: JP-ABBOTT-09P-087-0591739-00

PATIENT
  Sex: Male
  Weight: 59.2 kg

DRUGS (19)
  1. HUMIRA [Suspect]
     Indication: RHEUMATOID ARTHRITIS
     Route: 058
     Dates: start: 20090317
  2. TACROLIMUS [Concomitant]
     Indication: RHEUMATOID ARTHRITIS
     Dosage: 3 MG DAILY DOSE
  3. PREDNISOLONE [Concomitant]
     Indication: RHEUMATOID ARTHRITIS
     Dosage: 10 MG DAILY DOSE
     Route: 048
     Dates: end: 20090402
  4. PREDNISOLONE [Concomitant]
     Dosage: 7.5 MG DAILY DOSE
     Route: 048
     Dates: start: 20090403, end: 20090409
  5. PREDNISOLONE [Concomitant]
     Dosage: 5 MG DAILY DOSE
     Route: 048
     Dates: start: 20090410, end: 20090618
  6. PREDNISOLONE [Concomitant]
     Dosage: 10 MG DAILY DOSE
     Route: 048
     Dates: start: 20090619, end: 20090712
  7. PREDNISOLONE [Concomitant]
     Dosage: 7.5 MG DAILY DOSE
     Route: 048
     Dates: start: 20090713, end: 20090813
  8. PREDNISOLONE [Concomitant]
     Dosage: 7 MG DAILY
     Dates: start: 20090814, end: 20090904
  9. PREDNISOLONE [Concomitant]
     Dosage: 6 MG DAILY
     Dates: start: 20090905
  10. CILNIDIPINE [Concomitant]
     Indication: DRUG USE FOR UNKNOWN INDICATION
     Dosage: 20 MG DAILY DOSE
  11. CALCIUM L-ASPARTATE HYDRATE [Concomitant]
     Indication: DRUG USE FOR UNKNOWN INDICATION
     Dosage: 400 MG DAILY DOSE
  12. LIMAPROST ALFADEX [Concomitant]
     Indication: DRUG USE FOR UNKNOWN INDICATION
     Dosage: 3 T DAILY
     Dates: end: 20090612
  13. LIMAPROST ALFADEX [Concomitant]
     Dosage: 3 T DAILY
     Dates: start: 20090619
  14. LOXOPROFEN SODIUM HYDRATE [Concomitant]
     Indication: DRUG USE FOR UNKNOWN INDICATION
     Dosage: 180 MG DAILY DOSE
  15. SULFAMETHOXAZOLE AND TRIMETHOPRIM [Concomitant]
     Indication: ANTIFUNGAL PROPHYLAXIS
     Dosage: 1 T DAILY
  16. OMEPRAZOLE [Concomitant]
     Indication: DRUG USE FOR UNKNOWN INDICATION
     Dosage: 10 MG DAILY DOSE
  17. SODIUM RISEDRONATE HYDRATE [Concomitant]
     Indication: DRUG USE FOR UNKNOWN INDICATION
  18. ZOLPIDEM TARTRATE [Concomitant]
     Indication: PROPHYLAXIS
     Dosage: 10 MG DAILY DOSE
     Dates: start: 20090613
  19. ZOLPIDEM TARTRATE [Concomitant]
     Indication: INSOMNIA

REACTIONS (3)
  - CEREBRAL THROMBOSIS [None]
  - DIZZINESS [None]
  - GAIT DISTURBANCE [None]
